FAERS Safety Report 6079237-4 (Version None)
Quarter: 2009Q1

REPORT INFORMATION
  Report Type: 
  Country: None (occurrence: None)
  Receive Date: 20090216
  Receipt Date: 20090209
  Transmission Date: 20090719
  Serious: Yes (Hospitalization)
  Sender: FDA-Public Use
  Company Number: US-ABBOTT-09P-163-0502657-00

PATIENT
  Sex: Female

DRUGS (10)
  1. HUMIRA [Suspect]
     Indication: CROHN'S DISEASE
     Route: 058
     Dates: start: 20080129, end: 20080129
  2. HUMIRA [Suspect]
     Route: 058
     Dates: start: 20080201, end: 20080201
  3. HUMIRA [Suspect]
     Route: 058
     Dates: start: 20080201, end: 20080201
  4. HUMIRA [Suspect]
     Dosage: HUMIRA PEN
     Route: 058
     Dates: start: 20090122, end: 20090122
  5. HUMIRA [Suspect]
     Route: 058
     Dates: start: 20090206, end: 20090206
  6. LIALDA [Concomitant]
     Indication: CROHN'S DISEASE
     Route: 048
  7. KLONOPIN [Concomitant]
     Indication: ANXIETY
     Route: 048
  8. YAZ [Concomitant]
     Indication: OVARIAN CYST
     Dosage: UNKNOWN
     Route: 048
  9. PROTONIX [Concomitant]
     Indication: GASTROOESOPHAGEAL REFLUX DISEASE
     Route: 048
  10. ARANESP [Concomitant]
     Indication: THALASSAEMIA

REACTIONS (5)
  - FISTULA [None]
  - IMPAIRED HEALING [None]
  - INCISIONAL HERNIA [None]
  - PERICARDITIS [None]
  - SKIN ULCER [None]
